FAERS Safety Report 4628174-8 (Version None)
Quarter: 2005Q2

REPORT INFORMATION
  Report Type: 
  Country: None (occurrence: None)
  Receive Date: 20050406
  Receipt Date: 20050331
  Transmission Date: 20051028
  Serious: Yes (Hospitalization)
  Sender: FDA-Public Use
  Company Number: PHBS2005BR04535

PATIENT
  Age: 8 Year
  Sex: Male

DRUGS (1)
  1. TRILEPTAL [Suspect]
     Route: 065

REACTIONS (3)
  - FEBRILE CONVULSION [None]
  - HYPONATRAEMIA [None]
  - INFECTION [None]
